FAERS Safety Report 6209203-7 (Version None)
Quarter: 2009Q2

REPORT INFORMATION
  Report Type: 
  Country: None (occurrence: None)
  Receive Date: 20090529
  Receipt Date: 20090519
  Transmission Date: 20091009
  Serious: Yes (Other)
  Sender: FDA-Public Use
  Company Number: US-JNJFOC-20090303301

PATIENT

DRUGS (1)
  1. REMICADE [Suspect]
     Indication: PSORIASIS
     Route: 042

REACTIONS (5)
  - CATHETER RELATED COMPLICATION [None]
  - CONVULSION [None]
  - HYPOTENSION [None]
  - INFUSION RELATED REACTION [None]
  - TRANSIENT ISCHAEMIC ATTACK [None]
